FAERS Safety Report 18313785 (Version 1)
Quarter: 2020Q3

REPORT INFORMATION
  Report Type: Spontaneous
  Country: FI (occurrence: FI)
  Receive Date: 20200925
  Receipt Date: 20200925
  Transmission Date: 20201103
  Serious: Yes (Other)
  Sender: FDA-Public Use
  Company Number: FI-AMERICAN REGENT INC-2020001962

PATIENT
  Age: 76 Year
  Sex: Male

DRUGS (6)
  1. VITAMIN C [Suspect]
     Active Substance: ASCORBIC ACID
     Indication: HAEMOGLOBIN DECREASED
     Dosage: UNK
     Route: 065
  2. PRIMASPAN [Suspect]
     Active Substance: ASPIRIN
     Indication: PRODUCT USED FOR UNKNOWN INDICATION
     Dosage: 50 MG (1 DOSAGE FORMS,1 IN 1 D)
     Route: 065
     Dates: start: 2017, end: 2017
  3. FERINJECT [Suspect]
     Active Substance: FERRIC CARBOXYMALTOSE
     Indication: HAEMOGLOBIN DECREASED
     Dosage: UNK
     Route: 065
  4. MALTOFER                           /00023548/ [Suspect]
     Active Substance: IRON POLYMALTOSE
     Indication: HAEMOGLOBIN DECREASED
     Dosage: UNK
     Route: 065
  5. VENOFER [Suspect]
     Active Substance: IRON SUCROSE
     Indication: HAEMOGLOBIN DECREASED
     Dosage: UNK
     Route: 065
  6. MAREVAN [Suspect]
     Active Substance: WARFARIN SODIUM
     Indication: ATRIAL FIBRILLATION
     Dosage: ABOUT 45 MG PER WEEK, SO 1?1,5 TABLET PER DAY
     Route: 065
     Dates: start: 2014, end: 2018

REACTIONS (5)
  - Carotid artery disease [Unknown]
  - Haemoglobin decreased [Not Recovered/Not Resolved]
  - Faeces discoloured [Unknown]
  - Haematochezia [Recovered/Resolved]
  - Contusion [Unknown]
